FAERS Safety Report 24666037 (Version 6)
Quarter: 2025Q1

REPORT INFORMATION
  Report Type: Report from Study
  Country: FR (occurrence: FR)
  Receive Date: 20241126
  Receipt Date: 20250325
  Transmission Date: 20250408
  Serious: Yes (Other)
  Sender: MYLAN
  Company Number: FR-SA-SAC20231215000963

PATIENT
  Age: 72 Year
  Sex: Female
  Weight: 49 kg

DRUGS (95)
  1. DEXAMETHASONE [Suspect]
     Active Substance: DEXAMETHASONE
     Indication: Plasma cell myeloma refractory
     Dosage: 40 MILLIGRAM, QW
     Dates: start: 20220831, end: 20220922
  2. DEXAMETHASONE [Suspect]
     Active Substance: DEXAMETHASONE
     Dosage: 40 MILLIGRAM, QW
     Dates: start: 20220929, end: 20221020
  3. DEXAMETHASONE [Suspect]
     Active Substance: DEXAMETHASONE
     Dosage: 40 MILLIGRAM, QW
     Dates: start: 20221027, end: 20221027
  4. DEXAMETHASONE [Suspect]
     Active Substance: DEXAMETHASONE
     Dosage: 40 MILLIGRAM, QW
     Dates: start: 20221124, end: 20221124
  5. DEXAMETHASONE [Suspect]
     Active Substance: DEXAMETHASONE
     Dosage: 40 MILLIGRAM, QW
     Dates: start: 20221208, end: 20221228
  6. DEXAMETHASONE [Suspect]
     Active Substance: DEXAMETHASONE
     Dosage: 40 MILLIGRAM, QW
     Dates: start: 20230105, end: 20230118
  7. DEXAMETHASONE [Suspect]
     Active Substance: DEXAMETHASONE
     Dosage: 40 MILLIGRAM, QW
     Dates: start: 20230202, end: 20230223
  8. DEXAMETHASONE [Suspect]
     Active Substance: DEXAMETHASONE
     Dosage: 40 MILLIGRAM, BIWEEKLY
     Dates: start: 20230309, end: 20230323
  9. DEXAMETHASONE [Suspect]
     Active Substance: DEXAMETHASONE
     Dosage: 40 MILLIGRAM, BIWEEKLY
     Dates: start: 20230414, end: 20230427
  10. DEXAMETHASONE [Suspect]
     Active Substance: DEXAMETHASONE
     Dosage: 40 MILLIGRAM, BIWEEKLY
     Dates: start: 20230517, end: 20230601
  11. DEXAMETHASONE [Suspect]
     Active Substance: DEXAMETHASONE
     Dosage: 40 MILLIGRAM, BIWEEKLY
     Dates: start: 20230623, end: 20230706
  12. DEXAMETHASONE [Suspect]
     Active Substance: DEXAMETHASONE
     Dosage: 40 MILLIGRAM, BIWEEKLY
     Dates: start: 20230803, end: 20230817
  13. DEXAMETHASONE [Suspect]
     Active Substance: DEXAMETHASONE
     Dosage: 40 MILLIGRAM, BIWEEKLY
     Dates: start: 20230831, end: 20230914
  14. DEXAMETHASONE [Suspect]
     Active Substance: DEXAMETHASONE
     Dosage: 20 MILLIGRAM, MONTHLY
     Dates: start: 20231005, end: 20231005
  15. DEXAMETHASONE [Suspect]
     Active Substance: DEXAMETHASONE
     Dosage: 20 MILLIGRAM, MONTHLY
     Dates: start: 20231102, end: 20231102
  16. DEXAMETHASONE [Suspect]
     Active Substance: DEXAMETHASONE
     Dosage: 20 MILLIGRAM, MONTHLY
     Dates: start: 20231211, end: 20231211
  17. DEXAMETHASONE [Suspect]
     Active Substance: DEXAMETHASONE
     Dosage: 20 MILLIGRAM, MONTHLY
     Dates: start: 20240108, end: 20240108
  18. POMALIDOMIDE [Suspect]
     Active Substance: POMALIDOMIDE
     Indication: Plasma cell myeloma refractory
     Dosage: 4 MILLIGRAM, QD
     Dates: start: 20220831, end: 20220920
  19. POMALIDOMIDE [Suspect]
     Active Substance: POMALIDOMIDE
     Dosage: 4 MILLIGRAM, QD
     Dates: start: 20220929, end: 20221012
  20. POMALIDOMIDE [Suspect]
     Active Substance: POMALIDOMIDE
     Dosage: 4 MILLIGRAM, QD
     Dates: start: 20221027, end: 20221116
  21. POMALIDOMIDE [Suspect]
     Active Substance: POMALIDOMIDE
     Dosage: 4 MILLIGRAM, QD
     Dates: start: 20221208, end: 20221228
  22. POMALIDOMIDE [Suspect]
     Active Substance: POMALIDOMIDE
     Dosage: 4 MILLIGRAM, QD
     Dates: start: 20230105, end: 20230125
  23. POMALIDOMIDE [Suspect]
     Active Substance: POMALIDOMIDE
     Dosage: 4 MILLIGRAM, QD
     Dates: start: 20230202, end: 20230222
  24. POMALIDOMIDE [Suspect]
     Active Substance: POMALIDOMIDE
     Dosage: 3 MILLIGRAM, QD
     Dates: start: 20230309, end: 20230329
  25. POMALIDOMIDE [Suspect]
     Active Substance: POMALIDOMIDE
     Dosage: 3 MILLIGRAM, QD
     Dates: start: 20230414, end: 20230504
  26. POMALIDOMIDE [Suspect]
     Active Substance: POMALIDOMIDE
     Dosage: 3 MILLIGRAM, QD
     Dates: start: 20230517, end: 20230606
  27. POMALIDOMIDE [Suspect]
     Active Substance: POMALIDOMIDE
     Dosage: 3 MILLIGRAM, QD
     Dates: start: 20230623, end: 20230713
  28. POMALIDOMIDE [Suspect]
     Active Substance: POMALIDOMIDE
     Dosage: 3 MILLIGRAM, QD
     Dates: start: 20230803, end: 20230823
  29. POMALIDOMIDE [Suspect]
     Active Substance: POMALIDOMIDE
     Dosage: 3 MILLIGRAM, QD
     Dates: start: 20230831, end: 20230920
  30. POMALIDOMIDE [Suspect]
     Active Substance: POMALIDOMIDE
     Dosage: 2 MILLIGRAM, QD
     Dates: start: 20231005, end: 20231025
  31. POMALIDOMIDE [Suspect]
     Active Substance: POMALIDOMIDE
     Dosage: 2 MILLIGRAM, QD
     Dates: start: 20231102, end: 20231122
  32. POMALIDOMIDE [Suspect]
     Active Substance: POMALIDOMIDE
     Dosage: 2 MILLIGRAM, QD
     Dates: start: 20231211, end: 20231231
  33. POMALIDOMIDE [Suspect]
     Active Substance: POMALIDOMIDE
     Dosage: 2 MILLIGRAM, QD
     Dates: start: 20240108, end: 20240128
  34. POMALIDOMIDE [Suspect]
     Active Substance: POMALIDOMIDE
     Dosage: 2 MILLIGRAM, QD
     Dates: start: 20240219, end: 20240310
  35. POMALIDOMIDE [Suspect]
     Active Substance: POMALIDOMIDE
     Dosage: 2 MILLIGRAM, QD
     Dates: start: 20240325, end: 20240414
  36. POMALIDOMIDE [Suspect]
     Active Substance: POMALIDOMIDE
     Dosage: 2 MILLIGRAM, QD
     Dates: start: 20240503
  37. POMALIDOMIDE [Suspect]
     Active Substance: POMALIDOMIDE
     Dosage: 1 MILLIGRAM, QD
     Dates: start: 20240708, end: 20240728
  38. POMALIDOMIDE [Suspect]
     Active Substance: POMALIDOMIDE
     Dosage: 1 MILLIGRAM, QD
     Dates: start: 20240805, end: 20240825
  39. POMALIDOMIDE [Suspect]
     Active Substance: POMALIDOMIDE
     Dosage: 1 MILLIGRAM, QD
     Dates: start: 20240909, end: 20240929
  40. POMALIDOMIDE [Suspect]
     Active Substance: POMALIDOMIDE
     Dosage: 1 MILLIGRAM, QD
     Dates: start: 20241007, end: 20241027
  41. POMALIDOMIDE [Suspect]
     Active Substance: POMALIDOMIDE
     Dosage: 1 MILLIGRAM, QD
     Dates: start: 20241108, end: 20241128
  42. POMALIDOMIDE [Suspect]
     Active Substance: POMALIDOMIDE
     Dosage: 1 MILLIGRAM, QD
     Dates: start: 20241209
  43. ISATUXIMAB [Suspect]
     Active Substance: ISATUXIMAB
     Indication: Plasma cell myeloma refractory
     Dosage: 10 MILLIGRAM/KILOGRAM, QW
     Dates: start: 20220831, end: 20220922
  44. ISATUXIMAB [Suspect]
     Active Substance: ISATUXIMAB
     Dosage: 10 MILLIGRAM/KILOGRAM, BIWEEKLY (10 MG/KG, BIW)
     Dates: start: 20220929, end: 20221013
  45. ISATUXIMAB [Suspect]
     Active Substance: ISATUXIMAB
     Dosage: 10 MILLIGRAM/KILOGRAM, BIWEEKLY (10 MG/KG, BIW)
     Dates: start: 20221027, end: 20221027
  46. ISATUXIMAB [Suspect]
     Active Substance: ISATUXIMAB
     Dosage: 10 MILLIGRAM/KILOGRAM, BIWEEKLY (10 MG/KG, BIW)
     Dates: start: 20221124, end: 20221124
  47. ISATUXIMAB [Suspect]
     Active Substance: ISATUXIMAB
     Dosage: 10 MILLIGRAM/KILOGRAM, BIWEEKLY (10 MG/KG, BIW)
     Dates: start: 20221208, end: 20221222
  48. ISATUXIMAB [Suspect]
     Active Substance: ISATUXIMAB
     Dosage: 10 MILLIGRAM/KILOGRAM, BIWEEKLY (10 MG/KG, BIW)
     Dates: start: 20230105, end: 20230118
  49. ISATUXIMAB [Suspect]
     Active Substance: ISATUXIMAB
     Dosage: 10 MILLIGRAM/KILOGRAM, BIWEEKLY (10 MG/KG, BIW)
     Dates: start: 20230202, end: 20230216
  50. ISATUXIMAB [Suspect]
     Active Substance: ISATUXIMAB
     Dosage: 10 MILLIGRAM/KILOGRAM, BIWEEKLY (10 MG/KG, BIW)
     Dates: start: 20230309, end: 20230323
  51. ISATUXIMAB [Suspect]
     Active Substance: ISATUXIMAB
     Dosage: 10 MILLIGRAM/KILOGRAM, BIWEEKLY (10 MG/KG, BIW)
     Dates: start: 20230414, end: 20230427
  52. ISATUXIMAB [Suspect]
     Active Substance: ISATUXIMAB
     Dosage: 10 MILLIGRAM/KILOGRAM, BIWEEKLY (10 MG/KG, BIW)
     Dates: start: 20230515, end: 20230601
  53. ISATUXIMAB [Suspect]
     Active Substance: ISATUXIMAB
     Dosage: 10 MILLIGRAM/KILOGRAM, BIWEEKLY (10 MG/KG, BIW)
     Dates: start: 20230623, end: 20230706
  54. ISATUXIMAB [Suspect]
     Active Substance: ISATUXIMAB
     Dosage: 10 MILLIGRAM/KILOGRAM, BIWEEKLY (10 MG/KG, BIW)
     Dates: start: 20230803, end: 20230817
  55. ISATUXIMAB [Suspect]
     Active Substance: ISATUXIMAB
     Dosage: 10 MILLIGRAM/KILOGRAM, BIWEEKLY (10 MG/KG, BIW)
     Dates: start: 20230831, end: 20230914
  56. ISATUXIMAB [Suspect]
     Active Substance: ISATUXIMAB
     Dosage: 10 MILLIGRAM/KILOGRAM, MONTHLY
     Dates: start: 20231005, end: 20231005
  57. ISATUXIMAB [Suspect]
     Active Substance: ISATUXIMAB
     Dosage: 10 MILLIGRAM/KILOGRAM, MONTHLY
     Dates: start: 20231102, end: 20231102
  58. ISATUXIMAB [Suspect]
     Active Substance: ISATUXIMAB
     Dosage: 10 MILLIGRAM/KILOGRAM, MONTHLY
     Dates: start: 20231211, end: 20231211
  59. ISATUXIMAB [Suspect]
     Active Substance: ISATUXIMAB
     Dosage: 10 MILLIGRAM/KILOGRAM, MONTHLY
     Dates: start: 20240108, end: 20240108
  60. ISATUXIMAB [Suspect]
     Active Substance: ISATUXIMAB
     Dates: start: 20240219, end: 20240219
  61. ISATUXIMAB [Suspect]
     Active Substance: ISATUXIMAB
     Dosage: 10 MILLIGRAM/KILOGRAM, MONTHLY
     Dates: start: 20240325, end: 20240325
  62. ISATUXIMAB [Suspect]
     Active Substance: ISATUXIMAB
     Dosage: 10 MILLIGRAM/KILOGRAM, MONTHLY
     Dates: start: 20240503, end: 20240503
  63. ISATUXIMAB [Suspect]
     Active Substance: ISATUXIMAB
     Dosage: 10 MILLIGRAM/KILOGRAM, QW
     Dates: start: 20240531, end: 20240531
  64. ISATUXIMAB [Suspect]
     Active Substance: ISATUXIMAB
     Dates: start: 20240708, end: 20240708
  65. ISATUXIMAB [Suspect]
     Active Substance: ISATUXIMAB
     Dates: start: 20240805, end: 20240805
  66. ISATUXIMAB [Suspect]
     Active Substance: ISATUXIMAB
     Dates: start: 20240909, end: 20240909
  67. ISATUXIMAB [Suspect]
     Active Substance: ISATUXIMAB
     Dates: start: 20241007, end: 20241007
  68. ISATUXIMAB [Suspect]
     Active Substance: ISATUXIMAB
     Dates: start: 20241108, end: 20241108
  69. ISATUXIMAB [Suspect]
     Active Substance: ISATUXIMAB
     Dates: start: 20241209, end: 20241209
  70. LEVOTHYROXINE [Concomitant]
     Active Substance: LEVOTHYROXINE
     Indication: Benign neoplasm of thyroid gland
  71. FENOFIBRATE [Concomitant]
     Active Substance: FENOFIBRATE
     Indication: Dyslipidaemia
  72. ACETAMINOPHEN [Concomitant]
     Active Substance: ACETAMINOPHEN
     Indication: Premedication
     Dates: start: 20220831
  73. POLARAMINE [Concomitant]
     Active Substance: DEXCHLORPHENIRAMINE MALEATE
     Indication: Premedication
     Dates: start: 20220831
  74. FAMOTIDINE [Concomitant]
     Active Substance: FAMOTIDINE
     Indication: Premedication
     Dates: start: 20220831
  75. KARDEGIC [Concomitant]
     Active Substance: ASPIRIN DL-LYSINE
     Indication: Thrombosis prophylaxis
     Dates: start: 20220831, end: 20231128
  76. OMEPRAZOLE [Concomitant]
     Active Substance: OMEPRAZOLE
     Indication: Gastrooesophageal reflux prophylaxis
  77. ZOMETA [Concomitant]
     Active Substance: ZOLEDRONIC ACID
     Indication: Prophylaxis
     Dates: start: 20220831, end: 20230207
  78. VALACYCLOVIR HYDROCHLORIDE [Concomitant]
     Active Substance: VALACYCLOVIR HYDROCHLORIDE
     Indication: Antiviral prophylaxis
  79. ATOVAQUONE [Concomitant]
     Active Substance: ATOVAQUONE
     Indication: Infection prophylaxis
     Dates: start: 20220831, end: 20221107
  80. FILGRASTIM [Concomitant]
     Active Substance: FILGRASTIM
     Dates: start: 20220923, end: 20220925
  81. FILGRASTIM [Concomitant]
     Active Substance: FILGRASTIM
     Dates: start: 20221116, end: 20221119
  82. FILGRASTIM [Concomitant]
     Active Substance: FILGRASTIM
     Dates: start: 20230126, end: 20230127
  83. FILGRASTIM [Concomitant]
     Active Substance: FILGRASTIM
     Dates: start: 20230404, end: 20230406
  84. FILGRASTIM [Concomitant]
     Active Substance: FILGRASTIM
     Dates: start: 20230720, end: 20230724
  85. FILGRASTIM [Concomitant]
     Active Substance: FILGRASTIM
     Dates: start: 20231125, end: 20231127
  86. PAXLOVID [Concomitant]
     Active Substance: NIRMATRELVIR\RITONAVIR
     Dates: start: 20221105, end: 20221109
  87. ROXITHROMYCIN [Concomitant]
     Active Substance: ROXITHROMYCIN
     Dates: start: 20221116, end: 20221122
  88. PENTACARINAT [Concomitant]
     Active Substance: PENTAMIDINE ISETHIONATE
     Indication: Infection prophylaxis
     Dates: start: 20221013, end: 20241007
  89. CEFTRIAXONE [Concomitant]
     Active Substance: CEFTRIAXONE
     Dates: start: 20231125, end: 20231130
  90. SPIRAMYCIN [Concomitant]
     Active Substance: SPIRAMYCIN
     Dates: start: 20231125, end: 20231125
  91. AMIKACIN [Concomitant]
     Active Substance: AMIKACIN
     Dates: start: 20231125, end: 20231125
  92. LEVOFLOXACIN [Concomitant]
     Active Substance: LEVOFLOXACIN
     Dates: start: 20231126, end: 20231207
  93. Spasfon [Concomitant]
  94. SMECTA [Concomitant]
     Active Substance: MONTMORILLONITE
  95. HYQVIA [Concomitant]
     Active Substance: HUMAN IMMUNOGLOBULIN G\HYALURONIDASE (HUMAN RECOMBINANT)
     Indication: Viral infection
     Dates: start: 20241107, end: 20241107

REACTIONS (6)
  - Neutropenia [Not Recovered/Not Resolved]
  - Atrial fibrillation [Not Recovered/Not Resolved]
  - Constipation [Not Recovered/Not Resolved]
  - Anaemia [Not Recovered/Not Resolved]
  - Tonsillitis [Recovered/Resolved]
  - Nasopharyngitis [Recovered/Resolved]

NARRATIVE: CASE EVENT DATE: 20221011
